FAERS Safety Report 16974871 (Version 1)
Quarter: 2019Q4

REPORT INFORMATION
  Report Type: Spontaneous
  Country: US (occurrence: US)
  Receive Date: 20190912
  Receipt Date: 20190912
  Transmission Date: 20200122
  Serious: Yes (Death)
  Sender: FDA-Public Use
  Company Number: None

PATIENT
  Age: 79 Year
  Sex: Female

DRUGS (1)
  1. APREPITANT 80+125 [Suspect]
     Active Substance: APREPITANT
     Indication: NAUSEA
     Dosage: ?          OTHER DOSE:1 CAPSULE;?
     Route: 048

REACTIONS (1)
  - Death [None]
